FAERS Safety Report 24742124 (Version 1)
Quarter: 2024Q4

REPORT INFORMATION
  Report Type: Spontaneous
  Country: CA (occurrence: None)
  Receive Date: 20241217
  Receipt Date: 20241217
  Transmission Date: 20250115
  Serious: Yes (Hospitalization)
  Sender: ORION
  Company Number: CA-PFIZER INC-202400324540

PATIENT
  Age: 39 Year
  Sex: Female

DRUGS (7)
  1. METHOTREXATE [Suspect]
     Active Substance: METHOTREXATE
     Indication: Dermatitis atopic
     Dates: end: 2010
  2. AZATHIOPRINE [Concomitant]
     Active Substance: AZATHIOPRINE
  3. CLOBETASOL [Concomitant]
     Active Substance: CLOBETASOL
  4. CYCLOSPORINE [Concomitant]
     Active Substance: CYCLOSPORINE
  5. MYCOPHENOLATE MOFETIL [Concomitant]
     Active Substance: MYCOPHENOLATE MOFETIL
  6. TETRACYCLINE [Concomitant]
     Active Substance: TETRACYCLINE
  7. REMICADE [Concomitant]
     Active Substance: INFLIXIMAB

REACTIONS (4)
  - Migraine [Unknown]
  - Renal disorder [Unknown]
  - Infection [Unknown]
  - Product use in unapproved indication [Unknown]

NARRATIVE: CASE EVENT DATE: 20080101
